FAERS Safety Report 5700461-1 (Version None)
Quarter: 2008Q2

REPORT INFORMATION
  Report Type: 
  Country: None (occurrence: None)
  Receive Date: 20080410
  Receipt Date: 20080328
  Transmission Date: 20081010
  Serious: Yes (Other)
  Sender: FDA-Public Use
  Company Number: US-PFIZER INC-2008028748

PATIENT
  Sex: Female
  Weight: 87.1 kg

DRUGS (13)
  1. CHANTIX [Suspect]
     Indication: SMOKING CESSATION THERAPY
  2. NOVOLOG [Concomitant]
     Indication: DIABETES MELLITUS
     Dosage: TEXT:100/30
  3. METFORMIN HCL [Concomitant]
     Indication: DIABETES MELLITUS
  4. OXYCODONE HCL [Concomitant]
  5. DICLOFENAC SODIUM [Concomitant]
  6. VERAPAMIL [Concomitant]
     Indication: HYPERTENSION
  7. NORTRIPTYLINE HCL [Concomitant]
  8. NABUMETONE [Concomitant]
  9. COMBIVENT [Concomitant]
  10. OXYBUTYN [Concomitant]
  11. MAGNESIUM [Concomitant]
  12. CALCIUM [Concomitant]
  13. CRESTOR [Concomitant]
     Indication: BLOOD CHOLESTEROL INCREASED

REACTIONS (5)
  - BLOOD GLUCOSE INCREASED [None]
  - HEADACHE [None]
  - HYPOKINESIA [None]
  - INSOMNIA [None]
  - PAIN IN EXTREMITY [None]
